FAERS Safety Report 7683726-6 (Version None)
Quarter: 2011Q3

REPORT INFORMATION
  Report Type: 
  Country: None (occurrence: None)
  Receive Date: 20110803
  Receipt Date: 20110730
  Transmission Date: 20111222
  Serious: Yes (Other)
  Sender: FDA-Public Use
  Company Number: 2011029047

PATIENT
  Sex: Female

DRUGS (2)
  1. HIZENTRA [Suspect]
     Indication: IMMUNODEFICIENCY COMMON VARIABLE
     Dosage: (83 ML 1X/WEEK, 2 HOURS IN 8 SITES SUBCUTANEOUS), (SUBCUTANEOUS)
     Route: 058
     Dates: start: 20110301
  2. HIZENTRA [Suspect]

REACTIONS (10)
  - MALAISE [None]
  - ASTHENIA [None]
  - CHEST DISCOMFORT [None]
  - PAIN IN EXTREMITY [None]
  - DYSURIA [None]
  - PAINFUL RESPIRATION [None]
  - DYSPNOEA [None]
  - BACK PAIN [None]
  - OEDEMA PERIPHERAL [None]
  - HEADACHE [None]
